FAERS Safety Report 7076798-3 (Version None)
Quarter: 2010Q4

REPORT INFORMATION
  Report Type: 
  Country: None (occurrence: None)
  Receive Date: 20101022
  Receipt Date: 20101006
  Transmission Date: 20110411
  Serious: Yes (Hospitalization)
  Sender: FDA-Public Use
  Company Number: ACO_02590_2010

PATIENT
  Sex: Female
  Weight: 71.6683 kg

DRUGS (9)
  1. AMPYRA [Suspect]
     Indication: GAIT DISTURBANCE
     Dosage: 10 MG BID ORAL, 10 MG BID ORAL
     Route: 048
     Dates: start: 20100101, end: 20100908
  2. AMPYRA [Suspect]
     Indication: GAIT DISTURBANCE
     Dosage: 10 MG BID ORAL, 10 MG BID ORAL
     Route: 048
     Dates: start: 20100912, end: 20101004
  3. AMANTADINE [Concomitant]
  4. BACLOFEN [Concomitant]
  5. VITAMIN TAB [Concomitant]
  6. FISH OIL [Concomitant]
  7. IRON [Concomitant]
  8. CALCIUM [Concomitant]
  9. COENZYME [Concomitant]

REACTIONS (7)
  - ABASIA [None]
  - BALANCE DISORDER [None]
  - CONDITION AGGRAVATED [None]
  - DIZZINESS [None]
  - FALL [None]
  - HIP FRACTURE [None]
  - MUSCLE SPASMS [None]
